FAERS Safety Report 23063146 (Version 1)
Quarter: 2023Q4

REPORT INFORMATION
  Report Type: Spontaneous
  Country: BR (occurrence: BR)
  Receive Date: 20231013
  Receipt Date: 20231013
  Transmission Date: 20240110
  Serious: Yes (Other)
  Sender: FDA-Public Use
  Company Number: BR-ROCHE-3429438

PATIENT
  Sex: Female
  Weight: 85 kg

DRUGS (5)
  1. RIVOTRIL [Suspect]
     Active Substance: CLONAZEPAM
     Indication: Nervousness
     Route: 065
     Dates: start: 2014
  2. RIVOTRIL [Suspect]
     Active Substance: CLONAZEPAM
     Indication: Nervousness
     Dosage: 2 MG
     Route: 048
     Dates: start: 2014
  3. TAMOXIFEN [Concomitant]
     Active Substance: TAMOXIFEN
     Indication: Breast cancer
     Dosage: ONGOING
     Dates: start: 2014
  4. OLMESARTAN [Concomitant]
     Active Substance: OLMESARTAN
     Indication: Hypertension
     Dosage: ONGOING
  5. BETAHISTINE [Concomitant]
     Active Substance: BETAHISTINE
     Indication: Labyrinthitis
     Dosage: ONGOING
     Dates: start: 2006

REACTIONS (8)
  - Near death experience [Unknown]
  - Dizziness [Recovering/Resolving]
  - Malaise [Unknown]
  - Wrong technique in product usage process [Unknown]
  - Wrong dose [Unknown]
  - Product packaging issue [Unknown]
  - Off label use [Unknown]
  - Self-induced vomiting [Recovered/Resolved]

NARRATIVE: CASE EVENT DATE: 20140101
